FAERS Safety Report 8544751-6 (Version None)
Quarter: 2012Q3

REPORT INFORMATION
  Report Type: 
  Country: None (occurrence: None)
  Receive Date: 20120727
  Receipt Date: 20120712
  Transmission Date: 20120928
  Serious: Yes (Death, Other)
  Sender: FDA-Public Use
  Company Number: JP-ROCHE-1082194

PATIENT
  Sex: Male
  Weight: 57 kg

DRUGS (21)
  1. CARBOPLATIN [Suspect]
     Route: 041
     Dates: start: 20120201
  2. DEXAMETHASONE SODIUM PHOSPHATE [Concomitant]
     Indication: PROPHYLAXIS OF NAUSEA AND VOMITING
     Dosage: SINGLE USE
     Route: 042
     Dates: start: 20111228, end: 20120412
  3. REBAMIPIDE [Concomitant]
     Indication: GASTRITIS PROPHYLAXIS
     Dosage: SINGLE USE
     Route: 048
     Dates: end: 20120508
  4. PACLITAXEL [Suspect]
     Indication: LUNG ADENOCARCINOMA METASTATIC
     Route: 041
     Dates: start: 20111228, end: 20120101
  5. LOXOPROFEN SODIUM [Concomitant]
     Dosage: SINGLE USE
     Route: 048
     Dates: end: 20120508
  6. ZOFRAN [Concomitant]
     Indication: PROPHYLAXIS OF NAUSEA AND VOMITING
     Dosage: SINGLE USE
     Route: 048
     Dates: start: 20111228, end: 20120412
  7. AVASTIN [Suspect]
     Indication: LUNG ADENOCARCINOMA METASTATIC
     Route: 041
     Dates: start: 20111228, end: 20111228
  8. AVASTIN [Suspect]
     Route: 041
     Dates: start: 20120315, end: 20120315
  9. PACLITAXEL [Suspect]
     Route: 041
     Dates: start: 20120201, end: 20120101
  10. CARBOPLATIN [Suspect]
     Route: 041
     Dates: start: 20120315, end: 20120315
  11. RESTAMIN [Concomitant]
     Indication: PROPHYLAXIS
     Dosage: SINGLE USE
     Route: 048
     Dates: start: 20111228, end: 20120412
  12. DICLOFENAC SODIUM [Concomitant]
     Dosage: SINGLE USE
     Route: 054
     Dates: start: 20111230, end: 20111230
  13. SENNOSIDE [Concomitant]
     Indication: CONSTIPATION
     Dosage: SINGLE USE
     Route: 048
     Dates: end: 20120416
  14. BROTIZOLAM [Concomitant]
     Indication: INSOMNIA
     Dosage: SINGLE USE
     Route: 048
     Dates: start: 20120203, end: 20120508
  15. AMPICILLIN SODIUM [Suspect]
     Indication: INTERSTITIAL LUNG DISEASE
     Route: 042
     Dates: start: 20120502, end: 20120509
  16. AVASTIN [Suspect]
     Route: 041
     Dates: start: 20120201, end: 20120201
  17. PACLITAXEL [Suspect]
     Route: 041
     Dates: start: 20120315, end: 20120412
  18. CARBOPLATIN [Suspect]
     Indication: LUNG ADENOCARCINOMA METASTATIC
     Route: 041
     Dates: start: 20111228
  19. VITAMEDIN (JAPAN) [Concomitant]
     Indication: PROPHYLAXIS
     Dosage: SINGLE USE
     Route: 042
     Dates: start: 20111228, end: 20120412
  20. GASTER (JAPAN) [Concomitant]
     Indication: PROPHYLAXIS
     Dosage: SINGLE USE
     Route: 042
     Dates: start: 20111228, end: 20120412
  21. GRANISETRON HYDROCHLORIDE [Concomitant]
     Indication: PROPHYLAXIS OF NAUSEA AND VOMITING
     Dosage: SINGLE USE
     Route: 041
     Dates: start: 20111228, end: 20120412

REACTIONS (8)
  - INTERSTITIAL LUNG DISEASE [None]
  - PNEUMONIA [None]
  - RASH [None]
  - ECZEMA [None]
  - NASOPHARYNGITIS [None]
  - HYPERTENSION [None]
  - COLONIC POLYP [None]
  - NEUTROPHIL COUNT DECREASED [None]
